FAERS Safety Report 7715508-0 (Version None)
Quarter: 2011Q3

REPORT INFORMATION
  Report Type: 
  Country: None (occurrence: None)
  Receive Date: 20110822
  Receipt Date: 20110808
  Transmission Date: 20111222
  Serious: Yes (Other)
  Sender: FDA-Public Use
  Company Number: DSJ-2011-14037

PATIENT
  Age: 74 Year
  Sex: Male

DRUGS (4)
  1. CALBLOCK (AZELNIDIPINE) (TABLET) (AZELNIDINE) [Concomitant]
  2. OLMESARTAN MEDOXOMIL [Suspect]
     Indication: HYPERTENSION
     Dosage: 20 MG (20 MG, 1 IN 1 D), PER ORAL
     Route: 048
     Dates: start: 19960101, end: 20110618
  3. ALLOPURINOL [Suspect]
     Indication: HYPERURICAEMIA
     Dosage: 1 DOSAGE FORMS (1 DOSAGE FORMS, 1 IN 1 D), PER ORAL
     Route: 048
     Dates: end: 20110530
  4. URINORM (BENZBROMARONE) (TABLET) (BENZBROMARONE) [Suspect]
     Indication: HYPERURICAEMIA
     Dosage: 1 DOSAGE FORMS (1 DOSAGE FORMS, 1 IN 1 D), PER ORAL
     Route: 048

REACTIONS (8)
  - HYPONATRAEMIA [None]
  - INSOMNIA [None]
  - BLOOD CHLORIDE DECREASED [None]
  - MUSCLE TWITCHING [None]
  - BLOOD CHLORIDE INCREASED [None]
  - MUSCLE SPASMS [None]
  - HYPERURICAEMIA [None]
  - BLOOD CREATINE PHOSPHOKINASE INCREASED [None]
